FAERS Safety Report 5978058-8 (Version None)
Quarter: 2008Q4

REPORT INFORMATION
  Report Type: 
  Country: None (occurrence: None)
  Receive Date: 20081203
  Receipt Date: 20081124
  Transmission Date: 20090506
  Serious: Yes (Hospitalization)
  Sender: FDA-Public Use
  Company Number: AU-MERCK-0811AUS00201

PATIENT
  Age: 64 Year
  Sex: Male

DRUGS (6)
  1. ZOCOR [Suspect]
     Indication: METABOLIC DISORDER
     Route: 048
     Dates: end: 20080508
  2. INFLUENZA VIRUS SPLIT VIRION 3V VACCINE INACTIVATED [Suspect]
     Indication: PROPHYLAXIS
     Route: 058
     Dates: start: 20080429
  3. ALLOPURINOL [Concomitant]
     Route: 065
  4. ASPIRIN [Concomitant]
     Route: 065
  5. METFORMIN HYDROCHLORIDE [Concomitant]
     Route: 065
  6. ACETAMINOPHEN [Concomitant]
     Route: 065

REACTIONS (5)
  - BLOOD CREATINE PHOSPHOKINASE INCREASED [None]
  - LIMB DISCOMFORT [None]
  - MYOGLOBINURIA [None]
  - RHABDOMYOLYSIS [None]
  - VIRAL MYOSITIS [None]
